FAERS Safety Report 25879937 (Version 1)
Quarter: 2025Q4

REPORT INFORMATION
  Report Type: Spontaneous
  Country: CN (occurrence: CN)
  Receive Date: 20251004
  Receipt Date: 20251004
  Transmission Date: 20260117
  Serious: Yes (Other)
  Sender: SANDOZ
  Company Number: CN-SANDOZ-SDZ2025CN071986

PATIENT

DRUGS (4)
  1. NIMODIPINE [Suspect]
     Active Substance: NIMODIPINE
     Indication: Cerebral haemorrhage
     Dosage: A RANGE OF 30?120 MG
     Route: 048
  2. NIMODIPINE [Suspect]
     Active Substance: NIMODIPINE
     Indication: Hypertension
  3. ROSUVASTATIN CALCIUM [Suspect]
     Active Substance: ROSUVASTATIN CALCIUM
     Indication: Cerebral haemorrhage
     Dosage: 10 MG, QD
     Route: 048
  4. ROSUVASTATIN CALCIUM [Suspect]
     Active Substance: ROSUVASTATIN CALCIUM
     Indication: Hypertension

REACTIONS (5)
  - Gastrointestinal haemorrhage [Unknown]
  - Hypotension [Unknown]
  - Vomiting [Unknown]
  - Nausea [Unknown]
  - Dizziness [Unknown]
